FAERS Safety Report 7043876-4 (Version None)
Quarter: 2010Q4

REPORT INFORMATION
  Report Type: 
  Country: None (occurrence: None)
  Receive Date: 20101013
  Receipt Date: 20101001
  Transmission Date: 20110411
  Serious: Yes (Other)
  Sender: FDA-Public Use
  Company Number: TW-PFIZER INC-2010124531

PATIENT
  Age: 70 Year
  Sex: Male

DRUGS (4)
  1. XANAX [Suspect]
  2. RITALIN [Suspect]
  3. DEPAKENE [Concomitant]
  4. ZOLPIDEM [Concomitant]

REACTIONS (3)
  - DIZZINESS [None]
  - FALL [None]
  - VERTIGO [None]
